FAERS Safety Report 18731570 (Version 28)
Quarter: 2025Q1

REPORT INFORMATION
  Report Type: Report from Study
  Country: US (occurrence: US)
  Receive Date: 20210112
  Receipt Date: 20250106
  Transmission Date: 20250409
  Serious: Yes (Hospitalization, Other)
  Sender: TAKEDA
  Company Number: US-SHIRE-US202019959

PATIENT
  Sex: Female
  Weight: 65 kg

DRUGS (43)
  1. HUMAN IMMUNOGLOBULIN G\HYALURONIDASE RECOMBINANT HUMAN [Suspect]
     Active Substance: HUMAN IMMUNOGLOBULIN G\HYALURONIDASE (HUMAN RECOMBINANT)
     Indication: Primary immunodeficiency syndrome
     Dosage: 30 GRAM, Q4WEEKS
     Dates: start: 20191210
  2. HUMAN IMMUNOGLOBULIN G\HYALURONIDASE RECOMBINANT HUMAN [Suspect]
     Active Substance: HUMAN IMMUNOGLOBULIN G\HYALURONIDASE (HUMAN RECOMBINANT)
     Indication: Immunodeficiency common variable
     Dosage: 40 GRAM, MONTHLY
  3. HUMAN IMMUNOGLOBULIN G\HYALURONIDASE RECOMBINANT HUMAN [Suspect]
     Active Substance: HUMAN IMMUNOGLOBULIN G\HYALURONIDASE (HUMAN RECOMBINANT)
     Dosage: 40 GRAM, Q4WEEKS
  4. HUMAN IMMUNOGLOBULIN G\HYALURONIDASE RECOMBINANT HUMAN [Suspect]
     Active Substance: HUMAN IMMUNOGLOBULIN G\HYALURONIDASE (HUMAN RECOMBINANT)
     Dosage: 40 GRAM, MONTHLY
  5. COVID-19 VACCINE NOS [Suspect]
     Active Substance: COVID-19 VACCINE
     Indication: COVID-19 immunisation
  6. DIPHENHYDRAMINE HYDROCHLORIDE [Concomitant]
     Active Substance: DIPHENHYDRAMINE HYDROCHLORIDE
  7. CYANOCOBALAMIN [Concomitant]
     Active Substance: CYANOCOBALAMIN
  8. SULFASALAZINE [Concomitant]
     Active Substance: SULFASALAZINE
  9. SODIUM CHLORIDE [Concomitant]
     Active Substance: SODIUM CHLORIDE
  10. EPINEPHRINE [Concomitant]
     Active Substance: EPINEPHRINE
  11. AZITHROMYCIN [Concomitant]
     Active Substance: AZITHROMYCIN
  12. SPIRIVA [Concomitant]
     Active Substance: TIOTROPIUM BROMIDE MONOHYDRATE
  13. ZYRTEC [Concomitant]
     Active Substance: CETIRIZINE HYDROCHLORIDE
  14. PLAQUENIL [Concomitant]
     Active Substance: HYDROXYCHLOROQUINE SULFATE
  15. ACETAMINOPHEN [Concomitant]
     Active Substance: ACETAMINOPHEN
  16. HYDROCORTISONE [Concomitant]
     Active Substance: HYDROCORTISONE
  17. PANTOPRAZOLE [Concomitant]
     Active Substance: PANTOPRAZOLE
  18. SINGULAIR [Concomitant]
     Active Substance: MONTELUKAST SODIUM
  19. FLUDROCORTISONE ACETATE [Concomitant]
     Active Substance: FLUDROCORTISONE ACETATE
  20. ALBUTEROL SULFATE [Concomitant]
     Active Substance: ALBUTEROL SULFATE
  21. FLUDROCORTISONE [Concomitant]
     Active Substance: FLUDROCORTISONE
  22. ALBUTEROL [Concomitant]
     Active Substance: ALBUTEROL
  23. SYNTHROID [Concomitant]
     Active Substance: LEVOTHYROXINE SODIUM
  24. FLUCONAZOLE [Concomitant]
     Active Substance: FLUCONAZOLE
  25. LIDOCAINE [Concomitant]
     Active Substance: LIDOCAINE
  26. ADVAIR HFA [Concomitant]
     Active Substance: FLUTICASONE PROPIONATE\SALMETEROL XINAFOATE
  27. SODIUM CHLORIDE [Concomitant]
     Active Substance: SODIUM CHLORIDE
  28. TOBRAMYCIN [Concomitant]
     Active Substance: TOBRAMYCIN
  29. ALLEGRA [Concomitant]
     Active Substance: FEXOFENADINE HYDROCHLORIDE
  30. ATROVENT HFA [Concomitant]
     Active Substance: IPRATROPIUM BROMIDE
  31. ACETAMINOPHEN\HYDROCODONE [Concomitant]
     Active Substance: ACETAMINOPHEN\HYDROCODONE
  32. VITAMIN D3 [Concomitant]
     Active Substance: CHOLECALCIFEROL
  33. LIOTHYRONINE SODIUM [Concomitant]
     Active Substance: LIOTHYRONINE SODIUM
  34. LEFLUNOMIDE [Concomitant]
     Active Substance: LEFLUNOMIDE
  35. ANORO ELLIPTA [Concomitant]
     Active Substance: UMECLIDINIUM BROMIDE\VILANTEROL TRIFENATATE
  36. ENBREL [Concomitant]
     Active Substance: ETANERCEPT
  37. AZTREONAM [Concomitant]
     Active Substance: AZTREONAM
  38. VITAMIN B COMPLEX [Concomitant]
     Active Substance: CYANOCOBALAMIN\DEXPANTHENOL\NIACINAMIDE\PYRIDOXINE HYDROCHLORIDE\RIBOFLAVIN 5^-PHOSPHATE SODIUM\THIA
  39. PHENTERMINE HYDROCHLORIDE [Concomitant]
     Active Substance: PHENTERMINE HYDROCHLORIDE
  40. HYDROXYCHLOROQUINE SULFATE [Concomitant]
     Active Substance: HYDROXYCHLOROQUINE SULFATE
  41. LYRICA [Concomitant]
     Active Substance: PREGABALIN
  42. JARDIANCE [Concomitant]
     Active Substance: EMPAGLIFLOZIN
  43. AZATHIOPRINE [Concomitant]
     Active Substance: AZATHIOPRINE

REACTIONS (23)
  - Vascular device infection [Not Recovered/Not Resolved]
  - Arthritis infective [Unknown]
  - Pneumonia [Not Recovered/Not Resolved]
  - Bronchiectasis [Unknown]
  - Pseudomonas infection [Unknown]
  - Rheumatoid arthritis [Unknown]
  - Psoriatic arthropathy [Unknown]
  - Post procedural infection [Unknown]
  - Arthritis [Not Recovered/Not Resolved]
  - Illness [Recovering/Resolving]
  - Scar [Unknown]
  - Bacterial infection [Unknown]
  - Infusion site discharge [Unknown]
  - Device leakage [Unknown]
  - Needle issue [Unknown]
  - Infusion site nodule [Unknown]
  - Infusion site bruising [Unknown]
  - Infection [Not Recovered/Not Resolved]
  - Lung disorder [Unknown]
  - Mydriasis [Unknown]
  - Visual impairment [Unknown]
  - COVID-19 [Unknown]
  - Pyrexia [Not Recovered/Not Resolved]
